FAERS Safety Report 13861169 (Version 1)
Quarter: 2017Q3

REPORT INFORMATION
  Report Type: Spontaneous
  Country: US (occurrence: US)
  Receive Date: 20170811
  Receipt Date: 20170811
  Transmission Date: 20171127
  Serious: Yes (Other)
  Sender: FDA-Public Use
  Company Number: US-PFIZER INC-2017342714

PATIENT
  Sex: Female

DRUGS (1)
  1. EFFEXOR XR [Suspect]
     Active Substance: VENLAFAXINE HYDROCHLORIDE
     Dosage: 37.5 MG, UNK
     Dates: start: 2017

REACTIONS (11)
  - Irritability [Unknown]
  - Panic attack [Unknown]
  - Pain in extremity [Not Recovered/Not Resolved]
  - Nausea [Unknown]
  - Dysarthria [Unknown]
  - Confusional state [Not Recovered/Not Resolved]
  - Blood pressure increased [Unknown]
  - Loss of consciousness [Not Recovered/Not Resolved]
  - Muscle tightness [Not Recovered/Not Resolved]
  - Bowel movement irregularity [Not Recovered/Not Resolved]
  - Blood sodium increased [Unknown]

NARRATIVE: CASE EVENT DATE: 2017
